FAERS Safety Report 7544713-1 (Version None)
Quarter: 2011Q2

REPORT INFORMATION
  Report Type: 
  Country: None (occurrence: None)
  Receive Date: 20110614
  Receipt Date: 20110607
  Transmission Date: 20111010
  Serious: No
  Sender: FDA-Public Use
  Company Number: US-BIOGENIDEC-2011BI021033

PATIENT
  Age: 60 Year
  Sex: Female

DRUGS (2)
  1. TYSABRI [Suspect]
     Indication: MULTIPLE SCLEROSIS
     Route: 042
     Dates: start: 20070622, end: 20110301
  2. TYSABRI [Suspect]
     Route: 042
     Dates: start: 20050203

REACTIONS (9)
  - ARTHRITIS [None]
  - DEPRESSION [None]
  - HYPERTENSION [None]
  - FATIGUE [None]
  - INSOMNIA [None]
  - GAIT DISTURBANCE [None]
  - MENISCUS LESION [None]
  - BALANCE DISORDER [None]
  - STRESS [None]
